FAERS Safety Report 10509268 (Version 7)
Quarter: 2015Q4

REPORT INFORMATION
  Report Type: Spontaneous
  Country: US (occurrence: US)
  Receive Date: 20141009
  Receipt Date: 20151229
  Transmission Date: 20160304
  Serious: Yes (Hospitalization, Disabling, Other)
  Sender: FDA-Public Use
  Company Number: US-009507513-1410USA004637

PATIENT
  Sex: Female
  Weight: 82.54 kg

DRUGS (2)
  1. NUVARING [Suspect]
     Active Substance: ETHINYL ESTRADIOL\ETONOGESTREL
     Indication: OVARIAN CYST
  2. NUVARING [Suspect]
     Active Substance: ETHINYL ESTRADIOL\ETONOGESTREL
     Indication: CONTRACEPTION
     Dosage: 0.120-0.120-0
     Route: 067
     Dates: start: 20110104, end: 201107

REACTIONS (10)
  - Pulmonary embolism [Recovered/Resolved]
  - Depression [Unknown]
  - Off label use [Unknown]
  - Vaginal haemorrhage [Unknown]
  - Chest pain [Unknown]
  - Chest pain [Unknown]
  - Anxiety [Unknown]
  - Chest pain [Unknown]
  - Chest pain [Unknown]
  - Attention deficit/hyperactivity disorder [Unknown]

NARRATIVE: CASE EVENT DATE: 2011
